FAERS Safety Report 8850988 (Version 2)
Quarter: 2012Q4

REPORT INFORMATION
  Report Type: 
  Country: FR (occurrence: FR)
  Receive Date: 20121019
  Receipt Date: 20121025
  Transmission Date: 20130627
  Serious: Yes (Hospitalization)
  Sender: FDA-Public Use
  Company Number: PHHY2012FR093159

PATIENT
  Age: 80 Year
  Sex: Female

DRUGS (1)
  1. ACLASTA [Suspect]
     Dosage: UNK UKN, UNK
     Route: 042

REACTIONS (2)
  - Retinal artery occlusion [Unknown]
  - Visual acuity reduced [Not Recovered/Not Resolved]
